FAERS Safety Report 10157860 (Version 1)
Quarter: 2014Q2

REPORT INFORMATION
  Report Type: Report from Study
  Country: US (occurrence: US)
  Receive Date: 20140507
  Receipt Date: 20140507
  Transmission Date: 20141212
  Serious: Yes (Death)
  Sender: FDA-Public Use
  Company Number: PHEH2014US009087

PATIENT
  Sex: Female

DRUGS (3)
  1. AFINITOR [Suspect]
     Indication: BREAST CANCER
  2. BACLOFEN [Concomitant]
     Indication: MULTIPLE SCLEROSIS
  3. AMITRIPTYLINE [Concomitant]

REACTIONS (3)
  - Eating disorder [Fatal]
  - Dyspepsia [Fatal]
  - Dehydration [Fatal]
